FAERS Safety Report 7969181-7 (Version None)
Quarter: 2011Q4

REPORT INFORMATION
  Report Type: 
  Country: None (occurrence: None)
  Receive Date: 20111209
  Receipt Date: 20111205
  Transmission Date: 20120403
  Serious: Yes (Hospitalization, Other)
  Sender: FDA-Public Use
  Company Number: US-PFIZER INC-2011296767

PATIENT
  Sex: Female
  Weight: 58.957 kg

DRUGS (3)
  1. LYRICA [Suspect]
     Indication: PAIN
     Dosage: 75 MG, 4X/DAY
     Route: 048
     Dates: start: 20100101, end: 20111006
  2. PERCOCET [Concomitant]
     Dosage: 10 MG
  3. BENTYL [Concomitant]
     Indication: IRRITABLE BOWEL SYNDROME
     Dosage: 20 MG

REACTIONS (15)
  - HEART RATE IRREGULAR [None]
  - CARDIAC FAILURE [None]
  - CEREBROVASCULAR ACCIDENT [None]
  - CHEST PAIN [None]
  - ABASIA [None]
  - PYREXIA [None]
  - SUICIDAL IDEATION [None]
  - DEPRESSION [None]
  - PULMONARY OEDEMA [None]
  - FLUID RETENTION [None]
  - CONVULSION [None]
  - OEDEMA PERIPHERAL [None]
  - NAIL INJURY [None]
  - DISORIENTATION [None]
  - DYSPNOEA AT REST [None]
